FAERS Safety Report 21498769 (Version 1)
Quarter: 2022Q4

REPORT INFORMATION
  Report Type: Spontaneous
  Country: US (occurrence: None)
  Receive Date: 20221024
  Receipt Date: 20221024
  Transmission Date: 20230112
  Serious: Yes (Hospitalization)
  Sender: FDA-Public Use
  Company Number: None

PATIENT
  Sex: Female

DRUGS (7)
  1. PULMOZYME [Suspect]
     Active Substance: DORNASE ALFA
     Indication: Cystic fibrosis
     Dosage: FREQUENCY : TWICE A DAY;?DOSE OR AMOUNT: 2.5MG/2.5ML?
     Route: 055
     Dates: start: 20220331
  2. AZITHROMYCIN [Concomitant]
     Active Substance: AZITHROMYCIN
  3. COMPLETE FORM SOFTGEL [Concomitant]
  4. POLYETH GLYC 3350 [Concomitant]
  5. TOBI PODHALER [Concomitant]
     Active Substance: TOBRAMYCIN
  6. URSODIOL [Concomitant]
     Active Substance: URSODIOL
  7. ZENPEP [Concomitant]
     Active Substance: PANCRELIPASE AMYLASE\PANCRELIPASE LIPASE\PANCRELIPASE PROTEASE

REACTIONS (3)
  - Dyspnoea [None]
  - Cough [None]
  - Therapy interrupted [None]
